FAERS Safety Report 4963229-X (Version None)
Quarter: 2006Q2

REPORT INFORMATION
  Report Type: 
  Country: None (occurrence: None)
  Receive Date: 20060405
  Receipt Date: 20051214
  Transmission Date: 20061013
  Serious: Yes (Hospitalization, Other)
  Sender: FDA-Public Use
  Company Number: US-MERCK-0512USA02369

PATIENT
  Age: 54 Year
  Sex: Female
  Weight: 129 kg

DRUGS (1)
  1. VIOXX [Suspect]
     Indication: ARTHRITIS
     Route: 048
     Dates: start: 20020101

REACTIONS (11)
  - ABSCESS LIMB [None]
  - ARTERIOSCLEROSIS [None]
  - CELLULITIS [None]
  - DIABETIC COMPLICATION [None]
  - EAR PAIN [None]
  - MYOCARDIAL INFARCTION [None]
  - OSTEOMYELITIS [None]
  - PNEUMONIA KLEBSIELLA [None]
  - SEPSIS [None]
  - SKIN ULCER [None]
  - TOE AMPUTATION [None]
